FAERS Safety Report 9898287 (Version 2)
Quarter: 2014Q1

REPORT INFORMATION
  Report Type: Spontaneous
  Country: US (occurrence: US)
  Receive Date: 20140214
  Receipt Date: 20140214
  Transmission Date: 20141002
  Serious: No
  Sender: FDA-Public Use
  Company Number: US-GILEAD-2011-0042599

PATIENT
  Age: 68 Year
  Sex: Female

DRUGS (5)
  1. LETAIRIS [Suspect]
     Indication: PULMONARY HYPERTENSION
     Route: 048
     Dates: start: 20110714, end: 20110806
  2. LETAIRIS [Suspect]
     Indication: CREST SYNDROME
  3. LETAIRIS [Suspect]
     Indication: RHEUMATOID ARTHRITIS
  4. NIFEDIPINE [Concomitant]
  5. PREDNISONE [Concomitant]

REACTIONS (3)
  - Pneumonia [Not Recovered/Not Resolved]
  - Oedema [Not Recovered/Not Resolved]
  - Oedema peripheral [Not Recovered/Not Resolved]
